FAERS Safety Report 8256777-0 (Version None)
Quarter: 2012Q2

REPORT INFORMATION
  Report Type: 
  Country: None (occurrence: None)
  Receive Date: 20120403
  Receipt Date: 20120322
  Transmission Date: 20120825
  Serious: Yes (Hospitalization)
  Sender: FDA-Public Use
  Company Number: JP-PFIZER INC-2012078353

PATIENT
  Age: 72 Year
  Sex: Female

DRUGS (1)
  1. MIGLITOL [Suspect]
     Dosage: 225 MG, DAILY
     Route: 048

REACTIONS (1)
  - PNEUMATOSIS INTESTINALIS [None]
